FAERS Safety Report 12396205 (Version 1)
Quarter: 2016Q2

REPORT INFORMATION
  Report Type: Report from Study
  Country: US (occurrence: US)
  Receive Date: 20160524
  Receipt Date: 20160524
  Transmission Date: 20160815
  Serious: Yes (Hospitalization)
  Sender: FDA-Public Use
  Company Number: PHEH2016US012438

PATIENT
  Sex: Male

DRUGS (1)
  1. TASIGNA [Suspect]
     Active Substance: NILOTINIB
     Indication: PRODUCT USED FOR UNKNOWN INDICATION
     Dosage: 150 MG, QID, 2 IN THE MORNING AND 2 IN THE EVENING
     Route: 065
     Dates: start: 2011

REACTIONS (3)
  - Malaise [Unknown]
  - Depression [Unknown]
  - White blood cell count increased [Recovering/Resolving]
